FAERS Safety Report 8362533-5 (Version None)
Quarter: 2012Q2

REPORT INFORMATION
  Report Type: 
  Country: None (occurrence: None)
  Receive Date: 20120516
  Receipt Date: 20120504
  Transmission Date: 20120825
  Serious: Yes (Death, Hospitalization, Other)
  Sender: FDA-Public Use
  Company Number: FR-BRISTOL-MYERS SQUIBB COMPANY-15047053

PATIENT
  Age: 68 Year
  Sex: Male
  Weight: 85 kg

DRUGS (14)
  1. VALSARTAN [Concomitant]
  2. GLEEVEC [Suspect]
     Indication: CHRONIC MYELOID LEUKAEMIA
     Route: 048
     Dates: start: 20061215, end: 20080225
  3. TASIGNA [Suspect]
     Indication: CHRONIC MYELOID LEUKAEMIA
     Route: 048
     Dates: start: 20080424, end: 20100209
  4. DIAMICRON [Concomitant]
  5. SPRYCEL [Suspect]
     Indication: CHRONIC MYELOID LEUKAEMIA
     Route: 048
     Dates: start: 20080226, end: 20080407
  6. DILTIAZEM HCL [Concomitant]
  7. BISOPROLOL FUMARATE [Concomitant]
  8. SIMVASTATIN [Concomitant]
  9. BYETTA [Concomitant]
  10. LASIX [Concomitant]
  11. GLUCOPHAGE [Concomitant]
  12. ENALAPRIL MALEATE [Concomitant]
  13. ESIDRIX [Concomitant]
  14. ASPIRIN [Concomitant]

REACTIONS (6)
  - ANGIOSARCOMA METASTATIC [None]
  - RENAL CANCER [None]
  - PERIPHERAL ISCHAEMIA [None]
  - CARDIAC FAILURE [None]
  - PLEURAL EFFUSION [None]
  - NECROSIS ISCHAEMIC [None]
